FAERS Safety Report 6647467-6 (Version None)
Quarter: 2010Q1

REPORT INFORMATION
  Report Type: 
  Country: None (occurrence: None)
  Receive Date: 20100323
  Receipt Date: 20100323
  Transmission Date: 20100710
  Serious: No
  Sender: FDA-Public Use
  Company Number: None

PATIENT
  Age: 26 Year
  Sex: Female
  Weight: 82.5547 kg

DRUGS (1)
  1. PARAGARD T 380A [Suspect]
     Dates: start: 20060808, end: 20081029

REACTIONS (1)
  - URINE HUMAN CHORIONIC GONADOTROPIN POSITIVE [None]
